FAERS Safety Report 9718986 (Version 2)
Quarter: 2013Q4

REPORT INFORMATION
  Report Type: Spontaneous
  Country: JP (occurrence: JP)
  Receive Date: 20131127
  Receipt Date: 20131206
  Transmission Date: 20140711
  Serious: Yes (Other)
  Sender: FDA-Public Use
  Company Number: JP-PFIZER INC-2013332054

PATIENT
  Age: 41 Year
  Sex: Male

DRUGS (4)
  1. PRIDOL [Suspect]
     Indication: ASTHMA
     Dosage: 80 MG, DAILY
     Route: 041
  2. PREDNISOLONE [Concomitant]
     Indication: ASTHMA
     Dosage: 120 MG, UNK
     Route: 048
     Dates: start: 200904
  3. DEXAMETHASONE SODIUM PHOSPHATE [Concomitant]
     Dosage: 8 MG, UNK
     Route: 041
  4. AMINOPHYLLINE [Concomitant]
     Dosage: 125 MG, UNK
     Route: 041

REACTIONS (1)
  - Tracheal stenosis [Recovering/Resolving]
